FAERS Safety Report 4983208-6 (Version None)
Quarter: 2006Q2

REPORT INFORMATION
  Report Type: 
  Country: None (occurrence: None)
  Receive Date: 20060419
  Receipt Date: 20060404
  Transmission Date: 20061013
  Serious: Yes (Death, Hospitalization)
  Sender: FDA-Public Use
  Company Number: 2006-BP-03965RO

PATIENT
  Age: 67 Year
  Sex: Female
  Weight: 50.45 kg

DRUGS (2)
  1. MIRTAZAPINE [Suspect]
     Indication: DEPRESSION
     Dosage: SEE IMAGE, PO
     Route: 048
  2. ACETAMINOPHEN [Suspect]
     Dosage: PO
     Route: 048

REACTIONS (18)
  - ALANINE AMINOTRANSFERASE INCREASED [None]
  - ASPARTATE AMINOTRANSFERASE INCREASED [None]
  - ASPHYXIA [None]
  - BLOOD BILIRUBIN INCREASED [None]
  - BLOOD LACTATE DEHYDROGENASE INCREASED [None]
  - CONJUNCTIVAL DISORDER [None]
  - CYANOSIS [None]
  - DEPRESSION [None]
  - DROWNING [None]
  - DRUG TOXICITY [None]
  - HEPATIC NECROSIS [None]
  - INSOMNIA [None]
  - MIDDLE INSOMNIA [None]
  - ORAL MUCOSAL PETECHIAE [None]
  - PETECHIAE [None]
  - PULMONARY OEDEMA [None]
  - SOMNOLENCE [None]
  - SUICIDE ATTEMPT [None]
